FAERS Safety Report 23065521 (Version 1)
Quarter: 2023Q4

REPORT INFORMATION
  Report Type: Spontaneous
  Country: US (occurrence: US)
  Receive Date: 20231013
  Receipt Date: 20231013
  Transmission Date: 20240109
  Serious: Yes (Hospitalization, Other)
  Sender: FDA-Public Use
  Company Number: US-PRINSTON PHARMACEUTICAL INC.-2023PRN00513

PATIENT
  Age: 81 Year
  Sex: Male

DRUGS (2)
  1. METOPROLOL SUCCINATE [Suspect]
     Active Substance: METOPROLOL SUCCINATE
     Dosage: UNK
  2. AMLODIPINE [Suspect]
     Active Substance: AMLODIPINE BESYLATE
     Dosage: UNK

REACTIONS (5)
  - BRASH syndrome [Recovered/Resolved]
  - Hypothermia [Recovered/Resolved]
  - Atrial fibrillation [Recovered/Resolved]
  - Septic shock [Recovered/Resolved]
  - Blood thyroid stimulating hormone increased [Recovered/Resolved]
